FAERS Safety Report 4822013-8 (Version None)
Quarter: 2005Q4

REPORT INFORMATION
  Report Type: 
  Country: None (occurrence: None)
  Receive Date: 20051107
  Receipt Date: 20051026
  Transmission Date: 20060501
  Serious: Yes (Hospitalization)
  Sender: FDA-Public Use
  Company Number: US-JNJFOC-20051006119

PATIENT
  Sex: Female
  Weight: 54.43 kg

DRUGS (4)
  1. DURAGESIC-100 [Suspect]
     Route: 062
  2. PROTONIX [Concomitant]
     Indication: GASTRIC DISORDER
     Route: 048
  3. LORAZEPAM [Concomitant]
     Indication: GASTRIC DISORDER
     Route: 048
  4. LASIX [Concomitant]
     Route: 048

REACTIONS (2)
  - PNEUMONIA [None]
  - SCIATICA [None]
